FAERS Safety Report 5680782-1 (Version None)
Quarter: 2008Q1

REPORT INFORMATION
  Report Type: 
  Country: None (occurrence: None)
  Receive Date: 20080326
  Receipt Date: 20080304
  Transmission Date: 20080703
  Serious: No
  Sender: FDA-Public Use
  Company Number: US-BOEHRINGER INGELHEIM GMBH, GERMANY-2008-BP-03371BP

PATIENT
  Age: 48 Year
  Sex: Female

DRUGS (6)
  1. MIRAPEX [Suspect]
     Indication: RESTLESS LEGS SYNDROME
     Route: 048
     Dates: start: 20020101
  2. INSULIN [Concomitant]
     Indication: DIABETES MELLITUS
  3. SYNTHROID [Concomitant]
     Indication: HYPOTHYROIDISM
  4. ALTACE [Concomitant]
     Indication: CARDIAC DISORDER
  5. ATENOLOL [Concomitant]
     Indication: CARDIAC DISORDER
  6. LASIX [Concomitant]
     Indication: CARDIAC DISORDER

REACTIONS (1)
  - DRUG EFFECT DECREASED [None]
